FAERS Safety Report 17717125 (Version 1)
Quarter: 2020Q2

REPORT INFORMATION
  Report Type: Spontaneous
  Country: US (occurrence: US)
  Receive Date: 20200428
  Receipt Date: 20200428
  Transmission Date: 20200714
  Serious: No
  Sender: FDA-Public Use
  Company Number: US-PFIZER INC-2020167729

PATIENT
  Age: 76 Year
  Sex: Female

DRUGS (22)
  1. ZYRTEC [Concomitant]
     Active Substance: CETIRIZINE HYDROCHLORIDE
     Dosage: 10 MG
  2. ALENDRONATE SODIUM. [Concomitant]
     Active Substance: ALENDRONATE SODIUM
     Dosage: 10 MG
  3. NITROGLYCERIN. [Concomitant]
     Active Substance: NITROGLYCERIN
     Dosage: 0.3 MG
     Route: 060
  4. TYLENOL [Concomitant]
     Active Substance: ACETAMINOPHEN
     Dosage: 325 MG
  5. MUCINEX [Concomitant]
     Active Substance: GUAIFENESIN
     Dosage: 1200 MG
  6. MAGNESIUM [Concomitant]
     Active Substance: MAGNESIUM
     Dosage: 250 MG
  7. ATORVASTATIN CALCIUM. [Concomitant]
     Active Substance: ATORVASTATIN CALCIUM
     Dosage: 10 MG
  8. REFRESH OPTIVE ADVANCED [Concomitant]
     Active Substance: CARBOXYMETHYLCELLULOSE SODIUM\GLYCERIN\POLYSORBATE 80
     Dosage: UNK
  9. OMEPRAZOLE. [Concomitant]
     Active Substance: OMEPRAZOLE
     Dosage: 10 MG
  10. MECLIZINE HCL [Concomitant]
     Active Substance: MECLIZINE HYDROCHLORIDE
     Dosage: 12.5 MG
  11. POTASSIUM [Concomitant]
     Active Substance: POTASSIUM
     Dosage: 595 MG
  12. ANORO ELLIPTA [Concomitant]
     Active Substance: UMECLIDINIUM BROMIDE\VILANTEROL TRIFENATATE
     Dosage: UNK(62.5-25MCG BLST W/DEV)
  13. FIBER LAX [Concomitant]
     Active Substance: CALCIUM POLYCARBOPHIL
     Dosage: 625 MG
  14. PROAIR HFA [Concomitant]
     Active Substance: ALBUTEROL SULFATE
     Dosage: 90 UG
  15. ISOSORBIDE DINITRATE. [Concomitant]
     Active Substance: ISOSORBIDE DINITRATE
     Dosage: 10 MG
  16. METHOTREXATE. [Concomitant]
     Active Substance: METHOTREXATE
     Dosage: 2.5 MG
  17. XELJANZ XR [Suspect]
     Active Substance: TOFACITINIB CITRATE
     Indication: RHEUMATOID ARTHRITIS
     Dosage: 11 MG, DAILY
     Route: 048
     Dates: start: 20180101
  18. ELIQUIS [Concomitant]
     Active Substance: APIXABAN
     Dosage: 2.5 MG
  19. FUROSEMIDE. [Concomitant]
     Active Substance: FUROSEMIDE
     Dosage: 20 MG
  20. VITAMIN B12 [COBAMAMIDE] [Concomitant]
     Dosage: 2500 UG
  21. CARVEDILOL. [Concomitant]
     Active Substance: CARVEDILOL
     Dosage: 12.5 MG
  22. TURMERIC [CURCUMA LONGA] [Concomitant]
     Active Substance: HERBALS\TURMERIC
     Dosage: 400 MG

REACTIONS (1)
  - Urinary tract infection [Unknown]
